FAERS Safety Report 20525959 (Version 1)
Quarter: 2022Q1

REPORT INFORMATION
  Report Type: Spontaneous
  Country: US (occurrence: US)
  Receive Date: 20220228
  Receipt Date: 20220228
  Transmission Date: 20220423
  Serious: No
  Sender: FDA-Public Use
  Company Number: US-drreddys-SPO/USA/22/0147121

PATIENT
  Age: 54 Year

DRUGS (1)
  1. ACCUTANE [Suspect]
     Active Substance: ISOTRETINOIN
     Indication: Product used for unknown indication
     Dosage: RMA ISSUE DATE: 12 JANUARY 2022 01:21:13 PM, 1 DECEMBER 2021 12:00:00 AM, 26 OCTOBER 2021 12:00:00 A

REACTIONS (1)
  - Headache [Unknown]
